FAERS Safety Report 10615596 (Version 1)
Quarter: 2014Q4

REPORT INFORMATION
  Report Type: Spontaneous
  Country: US (occurrence: US)
  Receive Date: 20141201
  Receipt Date: 20141201
  Transmission Date: 20150529
  Serious: No
  Sender: FDA-Public Use
  Company Number: US-009507513-1411USA011411

PATIENT
  Sex: Female

DRUGS (1)
  1. NUVARING [Suspect]
     Active Substance: ETHINYL ESTRADIOL\ETONOGESTREL
     Dosage: STRENGTH: 0.015/0.12 (UNITS NOT PROVIDED); ONE RING FOR THE THREE WEEKS, THEN ONE WEEK WITHOUT
     Route: 067

REACTIONS (1)
  - Vaginal infection [Not Recovered/Not Resolved]
